FAERS Safety Report 8732381 (Version 2)
Quarter: 2015Q2

REPORT INFORMATION
  Report Type: Report from Study
  Country: US (occurrence: US)
  Receive Date: 20120820
  Receipt Date: 20150408
  Transmission Date: 20150821
  Serious: Yes (Other)
  Sender: FDA-Public Use
  Company Number: US-ROCHE-1097641

PATIENT
  Sex: Male

DRUGS (7)
  1. ACTIVASE [Suspect]
     Active Substance: ALTEPLASE
     Indication: ACUTE MYOCARDIAL INFARCTION
     Route: 042
  2. ATROPINE [Concomitant]
     Active Substance: ATROPINE
     Route: 042
  3. ASPIRIN. [Concomitant]
     Active Substance: ASPIRIN
  4. NITROGLYCERIN. [Concomitant]
     Active Substance: NITROGLYCERIN
     Route: 065
  5. MORPHINE SULPHATE DRIP [Concomitant]
     Route: 042
  6. LOPRESSOR [Concomitant]
     Active Substance: METOPROLOL TARTRATE
     Route: 048
  7. VALIUM [Concomitant]
     Active Substance: DIAZEPAM
     Route: 048

REACTIONS (11)
  - Haematoma [Unknown]
  - Ventricular extrasystoles [Unknown]
  - Peripheral swelling [Unknown]
  - Gingival bleeding [Recovered/Resolved]
  - Dyspnoea [Unknown]
  - Dental caries [Unknown]
  - Pallor [Unknown]
  - Tooth socket haemorrhage [Unknown]
  - Chest pain [Unknown]
  - Skin warm [Unknown]
  - Dry skin [Unknown]
